FAERS Safety Report 5522015-2 (Version None)
Quarter: 2007Q4

REPORT INFORMATION
  Report Type: 
  Country: None (occurrence: None)
  Receive Date: 20071115
  Receipt Date: 20071031
  Transmission Date: 20080405
  Serious: Yes (Hospitalization, Other)
  Sender: FDA-Public Use
  Company Number: 2007PV033400

PATIENT
  Sex: Male

DRUGS (5)
  1. SYMLIN [Suspect]
     Indication: TYPE 1 DIABETES MELLITUS
     Dosage: 15 MCG;TID;SC, 15 MCG,TID;SC
     Route: 058
     Dates: start: 20070809, end: 20070904
  2. SYMLIN [Suspect]
     Indication: TYPE 1 DIABETES MELLITUS
     Dosage: 15 MCG;TID;SC, 15 MCG,TID;SC
     Route: 058
     Dates: start: 20070101
  3. UNSPECIFIED BLOOD PRESSURE MEDICATION [Suspect]
     Indication: BLOOD PRESSURE ABNORMAL
     Dates: start: 20070101, end: 20070901
  4. INSULIN GLARGINE [Concomitant]
  5. INSULIN ASPART [Concomitant]

REACTIONS (3)
  - BLOOD CREATININE INCREASED [None]
  - DRUG INEFFECTIVE [None]
  - DYSPNOEA [None]
